FAERS Safety Report 16999090 (Version 1)
Quarter: 2019Q4

REPORT INFORMATION
  Report Type: Spontaneous
  Country: IN (occurrence: IN)
  Receive Date: 20191106
  Receipt Date: 20191106
  Transmission Date: 20200122
  Serious: Yes (Other)
  Sender: FDA-Public Use
  Company Number: NVSC2019IN022871

PATIENT
  Age: 28 Year

DRUGS (4)
  1. CLOFAZIMINE [Suspect]
     Active Substance: CLOFAZIMINE
     Indication: LEPROSY
     Dosage: 300 MG, QD (ONCE A MONTH)
     Route: 065
  2. CLOFAZIMINE [Suspect]
     Active Substance: CLOFAZIMINE
     Dosage: 50 MG, QD
     Route: 065
  3. DAPSONE. [Suspect]
     Active Substance: DAPSONE
     Indication: LEPROSY
     Dosage: 100 MG, QD
     Route: 065
  4. RIFAMPICIN [Suspect]
     Active Substance: RIFAMPIN
     Indication: LEPROSY
     Dosage: 600 MG, QD (ONCE A MONTH)
     Route: 065

REACTIONS (6)
  - Hepatitis [Unknown]
  - Pyrexia [Unknown]
  - Type 1 lepra reaction [Unknown]
  - Drug hypersensitivity [Unknown]
  - Dermatitis exfoliative [Unknown]
  - Lip swelling [Unknown]
